FAERS Safety Report 6109424-8 (Version None)
Quarter: 2009Q1

REPORT INFORMATION
  Report Type: 
  Country: None (occurrence: None)
  Receive Date: 20090310
  Receipt Date: 20090304
  Transmission Date: 20090719
  Serious: Yes (Hospitalization)
  Sender: FDA-Public Use
  Company Number: B0563155A

PATIENT
  Age: 74 Year
  Sex: Female

DRUGS (5)
  1. ZYLORIC [Suspect]
     Dosage: 100MG TWICE PER DAY
     Route: 048
     Dates: start: 20081117, end: 20081201
  2. AUGMENTIN '125' [Suspect]
     Indication: PARONYCHIA
     Dosage: 1G THREE TIMES PER DAY
     Route: 065
     Dates: start: 20081121, end: 20081201
  3. BETADINE [Concomitant]
     Route: 061
     Dates: start: 20081125, end: 20081201
  4. COLCHIMAX [Concomitant]
     Route: 048
     Dates: start: 20081117, end: 20081201
  5. ORBENINE [Concomitant]
     Indication: PARONYCHIA
     Route: 065
     Dates: start: 20081117, end: 20081121

REACTIONS (2)
  - DERMATITIS EXFOLIATIVE [None]
  - EPIDERMAL NECROSIS [None]
